FAERS Safety Report 22603312 (Version 1)
Quarter: 2023Q2

REPORT INFORMATION
  Report Type: Spontaneous
  Country: US (occurrence: US)
  Receive Date: 20230615
  Receipt Date: 20230615
  Transmission Date: 20230722
  Serious: Yes (Hospitalization, Other)
  Sender: FDA-Public Use
  Company Number: US-LUPIN PHARMACEUTICALS INC.-2023-04616

PATIENT
  Age: 68 Year
  Sex: Male

DRUGS (14)
  1. PAROXETINE [Suspect]
     Active Substance: PAROXETINE
     Indication: Depression
     Dosage: UNK
     Route: 065
  2. PAROXETINE [Suspect]
     Active Substance: PAROXETINE
     Indication: Anxiety
     Dosage: UNK, DOSE INCREASED
     Route: 065
     Dates: start: 2016
  3. PAROXETINE [Suspect]
     Active Substance: PAROXETINE
     Indication: Insomnia
  4. LORAZEPAM [Suspect]
     Active Substance: LORAZEPAM
     Indication: Depression
     Dosage: UNK
     Route: 065
     Dates: start: 2016
  5. LORAZEPAM [Suspect]
     Active Substance: LORAZEPAM
     Indication: Anxiety
     Dosage: 3 MG NIGHTLY
     Route: 065
  6. LORAZEPAM [Suspect]
     Active Substance: LORAZEPAM
     Indication: Insomnia
  7. TEMAZEPAM [Suspect]
     Active Substance: TEMAZEPAM
     Indication: Depression
     Dosage: UNK
     Route: 065
     Dates: start: 2016
  8. TEMAZEPAM [Suspect]
     Active Substance: TEMAZEPAM
     Indication: Anxiety
     Dosage: UNK 15-30MG; NIGHTLY
     Route: 065
  9. TEMAZEPAM [Suspect]
     Active Substance: TEMAZEPAM
     Indication: Insomnia
  10. 4-AMINO-3-PHENYLBUTYRIC ACID [Suspect]
     Active Substance: 4-AMINO-3-PHENYLBUTYRIC ACID
     Indication: Insomnia
     Dosage: UNK PILL
     Route: 065
  11. 4-AMINO-3-PHENYLBUTYRIC ACID [Suspect]
     Active Substance: 4-AMINO-3-PHENYLBUTYRIC ACID
     Indication: Anxiety
     Dosage: 3 GRAM NIGHTLY
     Route: 065
  12. 4-AMINO-3-PHENYLBUTYRIC ACID [Suspect]
     Active Substance: 4-AMINO-3-PHENYLBUTYRIC ACID
     Dosage: 7 GRAM, QD IN JUICE
     Route: 065
  13. DIPHENHYDRAMINE [Suspect]
     Active Substance: DIPHENHYDRAMINE
     Indication: Insomnia
     Dosage: 100 MG NIGHTLY
     Route: 065
  14. DIPHENHYDRAMINE [Suspect]
     Active Substance: DIPHENHYDRAMINE
     Indication: Anxiety

REACTIONS (3)
  - Substance use disorder [Recovering/Resolving]
  - Intentional product misuse [Recovering/Resolving]
  - Drug tolerance [Unknown]
